FAERS Safety Report 10931223 (Version 3)
Quarter: 2015Q2

REPORT INFORMATION
  Report Type: Spontaneous
  Country: JP (occurrence: None)
  Receive Date: 20150317
  Receipt Date: 20150420
  Transmission Date: 20150821
  Serious: Yes (Hospitalization, Other)
  Sender: FDA-Public Use
  Company Number: JP2015JPN006676

PATIENT
  Age: 71 Year
  Sex: Male

DRUGS (4)
  1. EPIVIR [Suspect]
     Active Substance: LAMIVUDINE
     Indication: HIV INFECTION
     Route: 048
     Dates: start: 20140905, end: 20150119
  2. ZIAGEN [Concomitant]
     Active Substance: ABACAVIR SULFATE
  3. EPIVIR [Suspect]
     Active Substance: LAMIVUDINE
     Indication: ACQUIRED IMMUNODEFICIENCY SYNDROME
     Route: 048
     Dates: start: 20140905, end: 20150119
  4. TIVICAY [Concomitant]
     Active Substance: DOLUTEGRAVIR SODIUM

REACTIONS (3)
  - Dyspnoea [None]
  - Ileus [None]
  - Palpitations [None]

NARRATIVE: CASE EVENT DATE: 20140910
